FAERS Safety Report 8404195-4 (Version None)
Quarter: 2012Q2

REPORT INFORMATION
  Report Type: 
  Country: None (occurrence: None)
  Receive Date: 20120601
  Receipt Date: 20111017
  Transmission Date: 20120825
  Serious: No
  Sender: FDA-Public Use
  Company Number: US-NOVEN-11US003446

PATIENT
  Sex: Male
  Weight: 37 kg

DRUGS (4)
  1. DAYTRANA [Suspect]
     Indication: ATTENTION DEFICIT/HYPERACTIVITY DISORDER
     Dosage: 10 MG, QD
     Route: 062
     Dates: start: 20110801
  2. LAMICTAL [Concomitant]
     Indication: CONVULSION
     Dosage: 75 MG, BID
     Route: 048
  3. ZYRTEC [Concomitant]
     Indication: HYPERSENSITIVITY
     Dosage: UNK
     Route: 048
  4. CLONIDINE [Concomitant]
     Indication: INSOMNIA
     Dosage: 0.1 MG, BEDTIME
     Route: 048

REACTIONS (12)
  - WRONG TECHNIQUE IN DRUG USAGE PROCESS [None]
  - APPLICATION SITE URTICARIA [None]
  - PRODUCT ADHESION ISSUE [None]
  - DISTURBANCE IN SOCIAL BEHAVIOUR [None]
  - MULTIPLE ALLERGIES [None]
  - DISTURBANCE IN ATTENTION [None]
  - DRUG ADMINISTERED AT INAPPROPRIATE SITE [None]
  - PRODUCT QUALITY ISSUE [None]
  - APPLICATION SITE ERYTHEMA [None]
  - OFF LABEL USE [None]
  - RHINORRHOEA [None]
  - DRUG ADMINISTRATION ERROR [None]
